FAERS Safety Report 4553131-X (Version None)
Quarter: 2005Q1

REPORT INFORMATION
  Report Type: 
  Country: None (occurrence: None)
  Receive Date: 20050114
  Receipt Date: 20050104
  Transmission Date: 20050727
  Serious: Yes (Life-Threatening, Hospitalization, Other)
  Sender: FDA-Public Use
  Company Number: FR-JNJFOC-20041200355

PATIENT
  Sex: Female
  Weight: 37.5 kg

DRUGS (2)
  1. RISPERDAL [Suspect]
     Indication: ANOREXIA
     Route: 049
  2. MULTIVITAMIN [Concomitant]

REACTIONS (3)
  - ALVEOLITIS ALLERGIC [None]
  - LEUKOPENIA [None]
  - NEUTROPENIA [None]
